FAERS Safety Report 16475665 (Version 1)
Quarter: 2019Q2

REPORT INFORMATION
  Report Type: Spontaneous
  Country: GB (occurrence: GB)
  Receive Date: 20190625
  Receipt Date: 20190625
  Transmission Date: 20190711
  Serious: Yes (Hospitalization, Other)
  Sender: FDA-Public Use
  Company Number: GB-TEVA-2019-GB-1067204

PATIENT
  Age: 53 Year
  Sex: Female
  Weight: 86.17 kg

DRUGS (1)
  1. NEBIVOLOL. [Suspect]
     Active Substance: NEBIVOLOL
     Indication: ATRIAL TACHYCARDIA
     Dosage: 2.5MILLIGRAM
     Route: 048
     Dates: start: 20190201

REACTIONS (12)
  - Head discomfort [Recovering/Resolving]
  - Arrhythmia [Recovering/Resolving]
  - Tremor [Recovering/Resolving]
  - Peripheral coldness [Recovering/Resolving]
  - Ear discomfort [Recovering/Resolving]
  - Anxiety [Recovering/Resolving]
  - Headache [Unknown]
  - Dizziness [Recovering/Resolving]
  - Angina pectoris [Recovering/Resolving]
  - Burning sensation [Recovering/Resolving]
  - Dyspnoea [Recovering/Resolving]
  - Abnormal weight gain [Not Recovered/Not Resolved]
